FAERS Safety Report 4951932-7 (Version None)
Quarter: 2006Q1

REPORT INFORMATION
  Report Type: 
  Country: None (occurrence: None)
  Receive Date: 20060320
  Receipt Date: 20060308
  Transmission Date: 20060701
  Serious: Yes (Death, Hospitalization)
  Sender: FDA-Public Use
  Company Number: 2006033598

PATIENT
  Age: 58 Year
  Sex: Male

DRUGS (2)
  1. TROVAFLOXACIN           (TROVAFLOXACIN) [Suspect]
     Indication: PNEUMONIA
     Dosage: INTRAVENOUS
     Route: 042
     Dates: start: 20060101, end: 20060101
  2. SEVERAL CARDIAC DRUGS NOS [Concomitant]

REACTIONS (4)
  - ANAEMIA [None]
  - CARDIAC ARREST [None]
  - GENERAL PHYSICAL HEALTH DETERIORATION [None]
  - SEPSIS [None]
